FAERS Safety Report 6246698-7 (Version None)
Quarter: 2009Q2

REPORT INFORMATION
  Report Type: 
  Country: None (occurrence: None)
  Receive Date: 20090624
  Receipt Date: 20090624
  Transmission Date: 20091009
  Serious: Yes (Other)
  Sender: FDA-Public Use
  Company Number: None

PATIENT
  Age: 75 Year
  Sex: Female
  Weight: 83.9154 kg

DRUGS (2)
  1. ACTONEL [Suspect]
     Indication: PROPHYLAXIS
     Dosage: 75MG 2 TIMES MONTHLY PO
     Route: 048
     Dates: start: 20080101, end: 20090623
  2. ACTONEL [Suspect]
     Indication: RESORPTION BONE INCREASED
     Dosage: 75MG 2 TIMES MONTHLY PO
     Route: 048
     Dates: start: 20080101, end: 20090623

REACTIONS (2)
  - JOINT SWELLING [None]
  - OEDEMA [None]
